FAERS Safety Report 7740006-8 (Version None)
Quarter: 2011Q3

REPORT INFORMATION
  Report Type: 
  Country: None (occurrence: None)
  Receive Date: 20110817
  Receipt Date: 20101221
  Transmission Date: 20111222
  Serious: Yes (Hospitalization, Other)
  Sender: FDA-Public Use
  Company Number: 20109746

PATIENT
  Age: 19 Year
  Sex: Female

DRUGS (1)
  1. LIORESAL [Suspect]
     Indication: MUSCLE SPASTICITY
     Dosage: UNK MCG, DAILY, INTRATHECAL
     Route: 037

REACTIONS (10)
  - HOSPITALISATION [None]
  - FULL BLOOD COUNT ABNORMAL [None]
  - INFECTION [None]
  - SEDATION [None]
  - HEADACHE [None]
  - MUSCLE SPASTICITY [None]
  - MENINGITIS [None]
  - DEPRESSED LEVEL OF CONSCIOUSNESS [None]
  - VOMITING [None]
  - OVERDOSE [None]
